FAERS Safety Report 8419341 (Version 3)
Quarter: 2012Q4

REPORT INFORMATION
  Report Type: 
  Country: US (occurrence: US)
  Receive Date: 20120221
  Receipt Date: 20121005
  Transmission Date: 20130627
  Serious: Yes (Other)
  Sender: FDA-Public Use
  Company Number: PHHY2011US55604

PATIENT
  Age: 79 Year
  Sex: Male
  Weight: 77.11 kg

DRUGS (6)
  1. GLEEVEC [Suspect]
     Indication: CHRONIC MYELOID LEUKAEMIA
     Dosage: 400 mg, once daily
     Route: 048
     Dates: start: 20100517
  2. ASPIRIN [Concomitant]
  3. ZOCOR [Concomitant]
  4. LISINOPRIL [Concomitant]
  5. PERCOCET [Concomitant]
  6. SIMVASTATIN [Concomitant]

REACTIONS (7)
  - Acute generalised exanthematous pustulosis [Unknown]
  - Rash [Not Recovered/Not Resolved]
  - Pruritus [Not Recovered/Not Resolved]
  - Haematochezia [Unknown]
  - Diarrhoea [Not Recovered/Not Resolved]
  - Hypertension [Recovered/Resolved]
  - Dizziness [Recovered/Resolved]
